FAERS Safety Report 23518905 (Version 1)
Quarter: 2024Q1

REPORT INFORMATION
  Report Type: Spontaneous
  Country: US (occurrence: None)
  Receive Date: 20240213
  Receipt Date: 20240213
  Transmission Date: 20240409
  Serious: Yes (Hospitalization)
  Sender: FDA-Public Use
  Company Number: None

PATIENT
  Age: 30 Year
  Sex: Female
  Weight: 54 kg

DRUGS (3)
  1. TYLENOL [Suspect]
     Active Substance: ACETAMINOPHEN
     Indication: Pyrexia
     Dosage: OTHER QUANTITY : 2 TABLET(S);?FREQUENCY : EVERY 6 HOURS;?
     Route: 048
     Dates: start: 20240211, end: 20240211
  2. multivitamin [Concomitant]
  3. OMEGA 3 [Concomitant]
     Active Substance: CAPSAICIN

REACTIONS (19)
  - Exposure during pregnancy [None]
  - Maternal drugs affecting foetus [None]
  - Maternal condition affecting foetus [None]
  - Palpitations [None]
  - Dyspnoea [None]
  - Paraesthesia [None]
  - Paraesthesia [None]
  - Sinus tachycardia [None]
  - Left atrial enlargement [None]
  - Electrocardiogram abnormal [None]
  - COVID-19 [None]
  - Dizziness [None]
  - Dizziness [None]
  - Fatigue [None]
  - Confusional state [None]
  - Haematuria [None]
  - Nail discolouration [None]
  - Cyanosis [None]
  - Dizziness [None]

NARRATIVE: CASE EVENT DATE: 20240211
